FAERS Safety Report 16312751 (Version 2)
Quarter: 2019Q2

REPORT INFORMATION
  Report Type: Spontaneous
  Country: DE (occurrence: DE)
  Receive Date: 20190515
  Receipt Date: 20190527
  Transmission Date: 20190711
  Serious: Yes (Other)
  Sender: FDA-Public Use
  Company Number: DE-BRISTOL-MYERS SQUIBB COMPANY-BMS-2019-046391

PATIENT
  Age: 77 Year
  Sex: Male

DRUGS (4)
  1. NIVOLUMAB [Suspect]
     Active Substance: NIVOLUMAB
     Indication: LENTIGO MALIGNA
     Dosage: UNK
     Route: 065
     Dates: start: 201505
  2. IPILIMUMAB [Suspect]
     Active Substance: IPILIMUMAB
     Indication: LENTIGO MALIGNA
     Dosage: UNK
     Route: 065
     Dates: start: 201505
  3. NIVOLUMAB [Suspect]
     Active Substance: NIVOLUMAB
     Indication: PRODUCT USED FOR UNKNOWN INDICATION
     Dosage: UNK
     Route: 065
     Dates: start: 20151019
  4. COTRIM FORTE [Concomitant]
     Active Substance: SULFAMETHOXAZOLE\TRIMETHOPRIM
     Indication: INFECTION PROPHYLAXIS
     Dosage: 960 MILLIGRAM, 3 TIMES/WK
     Route: 065

REACTIONS (11)
  - Gait disturbance [Unknown]
  - Fatigue [Unknown]
  - Respiratory rate increased [Unknown]
  - Thyroiditis [Unknown]
  - Pneumonia [Unknown]
  - Infection [Unknown]
  - Condition aggravated [Unknown]
  - Decreased appetite [Unknown]
  - Hypersomnia [Unknown]
  - Pancreatitis [Unknown]
  - Hepatitis fulminant [Unknown]
